FAERS Safety Report 17485841 (Version 1)
Quarter: 2020Q1

REPORT INFORMATION
  Report Type: Spontaneous
  Country: US (occurrence: US)
  Receive Date: 20200302
  Receipt Date: 20200302
  Transmission Date: 20200409
  Serious: No
  Sender: FDA-Public Use
  Company Number: US-ALKEM LABORATORIES LIMITED-US-ALKEM-2019-11007

PATIENT
  Age: 12 Year
  Sex: Male

DRUGS (3)
  1. COLCHICINE. [Suspect]
     Active Substance: COLCHICINE
     Indication: OPTIC NEURITIS
  2. COLCHICINE. [Suspect]
     Active Substance: COLCHICINE
     Indication: ACUTE DISSEMINATED ENCEPHALOMYELITIS
     Dosage: 0.5 MILLIGRAM, QD
     Route: 048
  3. COLCHICINE. [Suspect]
     Active Substance: COLCHICINE
     Indication: AUTOINFLAMMATORY DISEASE

REACTIONS (1)
  - Gastrointestinal disorder [Unknown]
